FAERS Safety Report 22919017 (Version 2)
Quarter: 2024Q3

REPORT INFORMATION
  Report Type: Spontaneous
  Country: QA (occurrence: QA)
  Receive Date: 20230907
  Receipt Date: 20240820
  Transmission Date: 20241016
  Serious: Yes (Life-Threatening)
  Sender: BAUSCH AND LOMB
  Company Number: QA-BAUSCHBL-2023BNL007972

PATIENT
  Age: 47 Year
  Sex: Male

DRUGS (10)
  1. DEXAMETHASONE [Suspect]
     Active Substance: DEXAMETHASONE
     Indication: COVID-19 pneumonia
     Route: 065
  2. DEVICE [Suspect]
     Active Substance: DEVICE
     Indication: COVID-19 pneumonia
     Route: 065
  3. EPTIFIBATIDE [Suspect]
     Active Substance: EPTIFIBATIDE
     Indication: Coronary artery thrombosis
     Dosage: 18HOURS AFTER PCI
     Route: 065
  4. ASPIRIN [Suspect]
     Active Substance: ASPIRIN
     Indication: Acute myocardial infarction
     Route: 065
  5. ASPIRIN [Suspect]
     Active Substance: ASPIRIN
     Indication: Coronary artery thrombosis
     Route: 065
  6. CLOPIDOGREL [Suspect]
     Active Substance: CLOPIDOGREL BISULFATE
     Indication: Acute myocardial infarction
     Route: 065
  7. CLOPIDOGREL [Suspect]
     Active Substance: CLOPIDOGREL BISULFATE
     Indication: Coronary artery thrombosis
     Route: 065
  8. HEPARIN [Suspect]
     Active Substance: HEPARIN SODIUM
     Indication: Coronary artery thrombosis
     Dosage: 18HOURS AFTER PCI
     Route: 065
  9. FUROSEMIDE [Suspect]
     Active Substance: FUROSEMIDE
     Indication: Coronary artery thrombosis
     Dosage: 18HOURS AFTER PCI
     Route: 065
  10. AMIODARONE [Concomitant]
     Active Substance: AMIODARONE
     Indication: Ventricular fibrillation

REACTIONS (1)
  - Therapy non-responder [Unknown]
